FAERS Safety Report 10590741 (Version 2)
Quarter: 2014Q4

REPORT INFORMATION
  Report Type: Report from Study
  Country: US (occurrence: US)
  Receive Date: 20141118
  Receipt Date: 20141123
  Transmission Date: 20150529
  Serious: Yes (Hospitalization, Other)
  Sender: FDA-Public Use
  Company Number: US-BRISTOL-MYERS SQUIBB COMPANY-21574173

PATIENT
  Age: 56 Year
  Sex: Female
  Weight: 80 kg

DRUGS (10)
  1. HYDREA [Suspect]
     Active Substance: HYDROXYUREA
     Dosage: FOR: CAP, 500 MG
     Route: 048
     Dates: end: 201409
  2. K-TAB [Concomitant]
     Active Substance: POTASSIUM CHLORIDE
  3. ATIVAN [Concomitant]
     Active Substance: LORAZEPAM
  4. MORPHINE [Concomitant]
     Active Substance: MORPHINE
  5. MAGNESIUM OXIDE. [Concomitant]
     Active Substance: MAGNESIUM OXIDE
  6. TUMS [Concomitant]
     Active Substance: CALCIUM CARBONATE
  7. PROTONIX [Concomitant]
     Active Substance: PANTOPRAZOLE SODIUM
  8. PERIDEX [Concomitant]
     Active Substance: CHLORHEXIDINE GLUCONATE
  9. OCEAN SALINE NASAL SPRAY [Concomitant]
     Active Substance: SODIUM CHLORIDE
  10. TYLENOL [Concomitant]
     Active Substance: ACETAMINOPHEN

REACTIONS (3)
  - Pulmonary mycosis [Unknown]
  - Respiratory failure [Recovered/Resolved]
  - Febrile neutropenia [Recovered/Resolved]

NARRATIVE: CASE EVENT DATE: 201409
